FAERS Safety Report 7204663-7 (Version None)
Quarter: 2010Q4

REPORT INFORMATION
  Report Type: 
  Country: None (occurrence: None)
  Receive Date: 20101230
  Receipt Date: 20101223
  Transmission Date: 20110411
  Serious: Yes (Other)
  Sender: FDA-Public Use
  Company Number: US-PFIZER INC-2010178847

PATIENT
  Age: 45 Year
  Sex: Male

DRUGS (8)
  1. CHANTIX [Suspect]
     Indication: SMOKING CESSATION THERAPY
     Dosage: 0.5 MG, 1X/DAY
     Route: 048
     Dates: start: 20101219, end: 20101220
  2. TRAMADOL [Concomitant]
     Dosage: 50 MG, UNK
  3. JANUVIA [Concomitant]
     Dosage: 100 MG, UNK
  4. LANTUS [Concomitant]
     Dosage: UNK, 3X/DAY
  5. LIPITOR [Concomitant]
     Dosage: 40 MG, UNK
  6. LISINOPRIL [Concomitant]
     Dosage: 5 MG, UNK
  7. METFORMIN [Concomitant]
     Dosage: 500 MG, UNK
  8. TRICOR [Concomitant]
     Dosage: 145 MG, UNK

REACTIONS (1)
  - CONVULSION [None]
